FAERS Safety Report 6556686-9 (Version None)
Quarter: 2010Q1

REPORT INFORMATION
  Report Type: 
  Country: None (occurrence: None)
  Receive Date: 20100128
  Receipt Date: 20100125
  Transmission Date: 20100710
  Serious: Yes (Death)
  Sender: FDA-Public Use
  Company Number: US-CELGENEUS-163-21880-10010240

PATIENT
  Sex: Female

DRUGS (3)
  1. REVLIMID [Suspect]
     Indication: MYELODYSPLASTIC SYNDROME
     Route: 048
     Dates: start: 20091001, end: 20100104
  2. REVLIMID [Suspect]
     Route: 048
     Dates: start: 20090901
  3. REVLIMID [Suspect]
     Indication: BLAST CELLS PRESENT

REACTIONS (1)
  - NEOPLASM PROGRESSION [None]
